FAERS Safety Report 15545235 (Version 3)
Quarter: 2019Q1

REPORT INFORMATION
  Report Type: Spontaneous
  Country: US (occurrence: US)
  Receive Date: 20181024
  Receipt Date: 20190314
  Transmission Date: 20190417
  Serious: No
  Sender: FDA-Public Use
  Company Number: US-PFIZER INC-2018420913

PATIENT
  Age: 71 Year
  Sex: Male
  Weight: 70.3 kg

DRUGS (3)
  1. HALCION [Suspect]
     Active Substance: TRIAZOLAM
     Indication: INSOMNIA
     Dosage: 0.5 MG, AS NEEDED (2 TABLETS BY MOUTH AT BEDTIME AS NEEDED)
     Route: 048
  2. HALCION [Suspect]
     Active Substance: TRIAZOLAM
     Dosage: UNK UNK, 1X/DAY (1 QD HS)
     Route: 048
     Dates: start: 20180905, end: 20181029
  3. HALCION [Suspect]
     Active Substance: TRIAZOLAM
     Dosage: 0.25 MG, AS NEEDED (2 TABLETS BY MOUTH AT BEDTIME AS NEEDED)
     Route: 048

REACTIONS (2)
  - Drug ineffective [Unknown]
  - Sleep disorder [Not Recovered/Not Resolved]

NARRATIVE: CASE EVENT DATE: 20180907
